FAERS Safety Report 6387142-9 (Version None)
Quarter: 2009Q4

REPORT INFORMATION
  Report Type: 
  Country: None (occurrence: None)
  Receive Date: 20091002
  Receipt Date: 20090923
  Transmission Date: 20100525
  Serious: Yes (Other)
  Sender: FDA-Public Use
  Company Number: PHHY2009BR41830

PATIENT
  Age: 38 Year
  Sex: Female

DRUGS (3)
  1. CATAFLAM [Suspect]
     Indication: FACIAL PALSY
     Dosage: 50 MG, EVERY 8 HOURS
     Route: 048
  2. ACYCLOVIR [Concomitant]
  3. GALENIC /CYANOCOBALAMIN/PYRIDOXINE/THIAMINE/ [Concomitant]
     Dosage: 5 MG

REACTIONS (12)
  - ABDOMINAL PAIN UPPER [None]
  - DIARRHOEA [None]
  - DIZZINESS [None]
  - DRY MOUTH [None]
  - DYSGEUSIA [None]
  - HYPERTENSION [None]
  - INSOMNIA [None]
  - MALAISE [None]
  - NECK PAIN [None]
  - SENSORY DISTURBANCE [None]
  - THROAT TIGHTNESS [None]
  - TREMOR [None]
